FAERS Safety Report 13241239 (Version 1)
Quarter: 2017Q1

REPORT INFORMATION
  Report Type: Spontaneous
  Country: JP (occurrence: JP)
  Receive Date: 20170216
  Receipt Date: 20170216
  Transmission Date: 20170428
  Serious: Yes (Other)
  Sender: FDA-Public Use
  Company Number: JP-BAYER-2017-028294

PATIENT
  Sex: Male

DRUGS (1)
  1. BAYASPIRIN 100 MG [Suspect]
     Active Substance: ASPIRIN
     Indication: ANGINA PECTORIS
     Dosage: UNK
     Route: 048

REACTIONS (3)
  - Gastric mucosal lesion [None]
  - Cardiac failure [None]
  - Anaemia [None]

NARRATIVE: CASE EVENT DATE: 2015
